FAERS Safety Report 8066623-6 (Version None)
Quarter: 2012Q1

REPORT INFORMATION
  Report Type: 
  Country: None (occurrence: None)
  Receive Date: 20120124
  Receipt Date: 20120119
  Transmission Date: 20120608
  Serious: Yes (Death, Hospitalization)
  Sender: FDA-Public Use
  Company Number: PHFR2012GB000759

PATIENT
  Sex: Female

DRUGS (1)
  1. CLOZARIL [Suspect]
     Indication: SCHIZOPHRENIA
     Route: 048
     Dates: start: 20030326

REACTIONS (5)
  - DEATH [None]
  - CARDIAC FAILURE [None]
  - OEDEMA [None]
  - RENAL FAILURE [None]
  - HYPERTENSION [None]
